FAERS Safety Report 16227945 (Version 1)
Quarter: 2019Q2

REPORT INFORMATION
  Report Type: Spontaneous
  Country: US (occurrence: US)
  Receive Date: 20190422
  Receipt Date: 20190422
  Transmission Date: 20190711
  Serious: Yes (Hospitalization)
  Sender: FDA-Public Use
  Company Number: None

PATIENT
  Age: 82 Year
  Sex: Male
  Weight: 81.14 kg

DRUGS (10)
  1. NYSTATIN. [Concomitant]
     Active Substance: NYSTATIN
  2. CHLOROXAZONE [Concomitant]
  3. CAPECITABINE. [Suspect]
     Active Substance: CAPECITABINE
     Route: 048
  4. FENTANYL. [Concomitant]
     Active Substance: FENTANYL
  5. LOSARTAN/HCTZ [Concomitant]
     Active Substance: HYDROCHLOROTHIAZIDE\LOSARTAN
  6. NORCO [Concomitant]
     Active Substance: ACETAMINOPHEN\HYDROCODONE BITARTRATE
  7. INDOMETHACIN. [Concomitant]
     Active Substance: INDOMETHACIN
  8. DIFLUCAN [Concomitant]
     Active Substance: FLUCONAZOLE
  9. METOPROLOL TARTRATE. [Concomitant]
     Active Substance: METOPROLOL TARTRATE
  10. CAPECITABINE. [Suspect]
     Active Substance: CAPECITABINE
     Route: 048

REACTIONS (1)
  - Transient ischaemic attack [None]
